FAERS Safety Report 25152608 (Version 1)
Quarter: 2025Q2

REPORT INFORMATION
  Report Type: Spontaneous
  Country: CN (occurrence: CN)
  Receive Date: 20250402
  Receipt Date: 20250402
  Transmission Date: 20250716
  Serious: Yes (Hospitalization)
  Sender: BEIGENE
  Company Number: CN-BEIGENE-BGN-2025-004891

PATIENT
  Age: 69 Year
  Weight: 75 kg

DRUGS (8)
  1. TISLELIZUMAB [Suspect]
     Active Substance: TISLELIZUMAB
     Indication: Oesophageal carcinoma
  2. TISLELIZUMAB [Suspect]
     Active Substance: TISLELIZUMAB
     Route: 041
  3. TISLELIZUMAB [Suspect]
     Active Substance: TISLELIZUMAB
     Route: 041
  4. TISLELIZUMAB [Suspect]
     Active Substance: TISLELIZUMAB
  5. NEDAPLATIN [Suspect]
     Active Substance: NEDAPLATIN
     Indication: Oesophageal carcinoma
     Route: 042
  6. NEDAPLATIN [Suspect]
     Active Substance: NEDAPLATIN
  7. PACLITAXEL [Suspect]
     Active Substance: PACLITAXEL
     Indication: Oesophageal carcinoma
     Dosage: 270 MILLIGRAM, QD
     Route: 042
  8. PACLITAXEL [Suspect]
     Active Substance: PACLITAXEL
     Dosage: 270 MILLIGRAM, QD

REACTIONS (6)
  - Aspartate aminotransferase increased [Recovering/Resolving]
  - White blood cell count decreased [Recovering/Resolving]
  - Red blood cell count decreased [Unknown]
  - Haemoglobin decreased [Unknown]
  - Neutrophil percentage increased [Unknown]
  - Haematocrit decreased [Unknown]
